FAERS Safety Report 19166526 (Version 2)
Quarter: 2021Q2

REPORT INFORMATION
  Report Type: Report from Study
  Country: CA (occurrence: CA)
  Receive Date: 20210421
  Receipt Date: 20210427
  Transmission Date: 20210717
  Serious: Yes (Hospitalization)
  Sender: FDA-Public Use
  Company Number: CA-PFIZER INC-2021387683

PATIENT
  Age: 71 Year
  Sex: Male
  Weight: 73.4 kg

DRUGS (2)
  1. AVELUMAB [Suspect]
     Active Substance: AVELUMAB
     Indication: RENAL CELL CARCINOMA
     Dosage: 770 MG, EVERY 2 WEEKS
     Route: 042
     Dates: end: 20210311
  2. INLYTA [Suspect]
     Active Substance: AXITINIB
     Indication: RENAL CELL CARCINOMA
     Dosage: 10 MG, TWICE DAILY, CONTINUOUS
     Route: 048
     Dates: end: 20210324

REACTIONS (1)
  - Superficial siderosis of central nervous system [Recovering/Resolving]

NARRATIVE: CASE EVENT DATE: 20210405
